FAERS Safety Report 8901839 (Version 1)
Quarter: 2012Q4

REPORT INFORMATION
  Report Type: Spontaneous
  Country: US (occurrence: None)
  Receive Date: 20121107
  Receipt Date: 20121107
  Transmission Date: 20130627
  Serious: Yes (Other)
  Sender: FDA-Public Use
  Company Number: FK201203265

PATIENT
  Age: 86 Year

DRUGS (3)
  1. FLUDARABINE PHOSPHATE [Suspect]
     Indication: PRODUCT USED FOR UNKNOWN INDICATION
  2. CYCLOPHOSPHAMIDE [Suspect]
     Indication: PRODUCT USED FOR UNKNOWN INDICATION
  3. RITUXIMAB [Suspect]
     Indication: PRODUCT USED FOR UNKNOWN INDICATION

REACTIONS (7)
  - Anaemia [None]
  - Chronic lymphocytic leukaemia [None]
  - Mucosal inflammation [None]
  - Failure to thrive [None]
  - Gastrointestinal fungal infection [None]
  - Gastrointestinal viral infection [None]
  - Pancytopenia [None]
